FAERS Safety Report 15591484 (Version 1)
Quarter: 2018Q4

REPORT INFORMATION
  Report Type: Spontaneous
  Country: US (occurrence: US)
  Receive Date: 20181107
  Receipt Date: 20181107
  Transmission Date: 20190205
  Serious: No
  Sender: FDA-Public Use
  Company Number: US-PFIZER INC-2016383711

PATIENT
  Age: 65 Year
  Sex: Male

DRUGS (1)
  1. LYRICA [Suspect]
     Active Substance: PREGABALIN
     Indication: TYPE 2 DIABETES MELLITUS
     Dosage: 75 MG, 3X/DAY
     Route: 048

REACTIONS (2)
  - Computerised tomogram thorax abnormal [Unknown]
  - Product use in unapproved indication [Unknown]
